FAERS Safety Report 20045253 (Version 2)
Quarter: 2021Q4

REPORT INFORMATION
  Report Type: Spontaneous
  Country: JP (occurrence: JP)
  Receive Date: 20211108
  Receipt Date: 20211111
  Transmission Date: 20220303
  Serious: Yes (Hospitalization, Other)
  Sender: FDA-Public Use
  Company Number: JP-ALLERGAN-1840970US

PATIENT
  Sex: Male

DRUGS (5)
  1. URSODIOL [Suspect]
     Active Substance: URSODIOL
     Indication: Cholelithiasis
     Dosage: 100 MG, TID
     Route: 048
  2. ETIZOLAM [Suspect]
     Active Substance: ETIZOLAM
     Indication: Product used for unknown indication
     Dosage: UNK
     Route: 048
  3. FLUNITRAZEPAM [Concomitant]
     Active Substance: FLUNITRAZEPAM
  4. BROTIZOLAM [Concomitant]
     Active Substance: BROTIZOLAM
     Route: 048
  5. DORAL [Concomitant]
     Active Substance: QUAZEPAM
     Route: 048

REACTIONS (10)
  - Bipolar disorder [Unknown]
  - Cholecystectomy [Unknown]
  - Chronic hepatitis [Unknown]
  - Sleep deficit [Unknown]
  - Gamma-glutamyltransferase increased [Unknown]
  - Aspartate aminotransferase increased [Unknown]
  - Dyspepsia [Unknown]
  - Constipation [Unknown]
  - Liver disorder [Unknown]
  - Therapeutic product effect incomplete [Unknown]
